FAERS Safety Report 19313652 (Version 1)
Quarter: 2021Q2

REPORT INFORMATION
  Report Type: Spontaneous
  Country: US (occurrence: US)
  Receive Date: 20210527
  Receipt Date: 20210527
  Transmission Date: 20210717
  Serious: No
  Sender: FDA-Public Use
  Company Number: US-CIPLA LTD.-2021US03053

PATIENT

DRUGS (1)
  1. DICLOFENAC [Suspect]
     Active Substance: DICLOFENAC
     Indication: ROTATOR CUFF SYNDROME
     Dosage: UNK
     Route: 061
     Dates: start: 20210415

REACTIONS (6)
  - Eye irritation [Recovered/Resolved]
  - Headache [Unknown]
  - Product odour abnormal [Unknown]
  - Product use in unapproved indication [Unknown]
  - Off label use [Unknown]
  - Urticaria [Unknown]

NARRATIVE: CASE EVENT DATE: 20210415
